FAERS Safety Report 9103862 (Version 1)
Quarter: 2013Q1

REPORT INFORMATION
  Report Type: Spontaneous
  Country: US (occurrence: None)
  Receive Date: 20130125
  Receipt Date: 20130125
  Transmission Date: 20140127
  Serious: Yes (Hospitalization, Other)
  Sender: FDA-Public Use
  Company Number: DAV-AE-PTU-13-01

PATIENT
  Age: 68 Year
  Sex: Female

DRUGS (4)
  1. PROPYLTHIOURACIL [Suspect]
     Indication: HYPERTHYROIDISM
     Dates: start: 2007
  2. WARFARIN [Concomitant]
  3. ENALAPRIL [Concomitant]
  4. SOTALOL [Concomitant]

REACTIONS (1)
  - Interstitial lung disease [None]
